FAERS Safety Report 6527913-9 (Version None)
Quarter: 2010Q1

REPORT INFORMATION
  Report Type: 
  Country: None (occurrence: None)
  Receive Date: 20100105
  Receipt Date: 20100105
  Transmission Date: 20100710
  Serious: No
  Sender: FDA-Public Use
  Company Number: None

PATIENT
  Age: 60 Year
  Sex: Male

DRUGS (1)
  1. IMIQUIMOD [Suspect]
     Indication: ANOGENITAL WARTS
     Dates: start: 20090921, end: 20091014

REACTIONS (8)
  - PAIN [None]
  - PENILE SWELLING [None]
  - PRURITUS [None]
  - RASH [None]
  - SCROTAL SWELLING [None]
  - SECRETION DISCHARGE [None]
  - SKIN IRRITATION [None]
  - URTICARIA [None]
